FAERS Safety Report 6521052-9 (Version None)
Quarter: 2009Q4

REPORT INFORMATION
  Report Type: 
  Country: None (occurrence: None)
  Receive Date: 20091229
  Receipt Date: 20091217
  Transmission Date: 20100525
  Serious: Yes (Other)
  Sender: FDA-Public Use
  Company Number: JP-PFIZER INC-2009262989

PATIENT
  Age: 66 Year
  Sex: Female

DRUGS (2)
  1. ADRIACIN [Suspect]
     Indication: BREAST CANCER
     Dosage: INJECTION
  2. CYCLOPHOSPHAMIDE [Suspect]
     Indication: BREAST CANCER
     Dosage: INJECTION

REACTIONS (1)
  - VENOUS THROMBOSIS [None]
